FAERS Safety Report 8923483 (Version 2)
Quarter: 2012Q4

REPORT INFORMATION
  Report Type: 
  Country: FI (occurrence: FI)
  Receive Date: 20121123
  Receipt Date: 20121127
  Transmission Date: 20130627
  Serious: Yes (Other)
  Sender: FDA-Public Use
  Company Number: FI-PFIZER INC-2012292149

PATIENT
  Age: 40 Year
  Sex: Male

DRUGS (2)
  1. CHAMPIX [Suspect]
     Dosage: initiated as per dosing instructions
  2. CHAMPIX [Suspect]
     Dosage: UNK

REACTIONS (1)
  - Haematuria [Recovered/Resolved]
